FAERS Safety Report 8207624-4 (Version None)
Quarter: 2012Q1

REPORT INFORMATION
  Report Type: 
  Country: None (occurrence: None)
  Receive Date: 20120314
  Receipt Date: 20120314
  Transmission Date: 20120608
  Serious: Yes (Life-Threatening)
  Sender: FDA-Public Use
  Company Number: None

PATIENT
  Age: 59 Year
  Sex: Male
  Weight: 104.32 kg

DRUGS (2)
  1. HUMIRA [Suspect]
     Indication: OSTEOARTHRITIS
     Dosage: ONE SELF INJECTION PEN 40MG
     Route: 030
     Dates: start: 20111210, end: 20120218
  2. METHOTREXATE [Concomitant]

REACTIONS (2)
  - WHITE BLOOD CELL COUNT DECREASED [None]
  - STEVENS-JOHNSON SYNDROME [None]
